FAERS Safety Report 5866685-8 (Version None)
Quarter: 2008Q3

REPORT INFORMATION
  Report Type: 
  Country: None (occurrence: None)
  Receive Date: 20080902
  Receipt Date: 20080820
  Transmission Date: 20090109
  Serious: Yes (Hospitalization)
  Sender: FDA-Public Use
  Company Number: PHHO2008DE10081

PATIENT
  Sex: Male
  Weight: 79.2 kg

DRUGS (3)
  1. STI571/CGP57148B T35717+CAPS [Suspect]
     Indication: CHRONIC MYELOID LEUKAEMIA
     Dosage: 800MG DAILY
     Route: 048
     Dates: start: 20080617
  2. PANTOZOL [Concomitant]
  3. ALLOPURINOL [Concomitant]

REACTIONS (3)
  - ANAEMIA [None]
  - CARDIOVASCULAR DISORDER [None]
  - THROMBOCYTOPENIA [None]
